FAERS Safety Report 13955043 (Version 1)
Quarter: 2017Q3

REPORT INFORMATION
  Report Type: Spontaneous
  Country: US (occurrence: US)
  Receive Date: 20170911
  Receipt Date: 20170911
  Transmission Date: 20171128
  Serious: Yes (Disabling)
  Sender: FDA-Public Use
  Company Number: None

PATIENT
  Age: 60 Year
  Sex: Female
  Weight: 90 kg

DRUGS (3)
  1. DULOXETINE HCL DR 30MG [Suspect]
     Active Substance: DULOXETINE HYDROCHLORIDE
     Indication: FIBROMYALGIA
     Dosage: ?          QUANTITY:90 CAPSULE(S);?
     Route: 048
     Dates: start: 20170816, end: 20170908
  2. LISINOPRYL [Concomitant]
  3. DULOXETINE HCL [Concomitant]
     Active Substance: DULOXETINE HYDROCHLORIDE

REACTIONS (7)
  - Feeling abnormal [None]
  - Confusional state [None]
  - Panic attack [None]
  - Constipation [None]
  - Anxiety [None]
  - Weight increased [None]
  - Fear [None]

NARRATIVE: CASE EVENT DATE: 20170820
